FAERS Safety Report 6149033-8 (Version None)
Quarter: 2009Q2

REPORT INFORMATION
  Report Type: 
  Country: None (occurrence: None)
  Receive Date: 20090406
  Receipt Date: 20090325
  Transmission Date: 20091009
  Serious: Yes (Death)
  Sender: FDA-Public Use
  Company Number: 200903IM000083

PATIENT
  Age: 14 Year
  Sex: Male
  Weight: 50 kg

DRUGS (5)
  1. ACTIMMUNE [Suspect]
     Indication: CHRONIC GRANULOMATOUS DISEASE
     Dates: start: 20060501, end: 20070601
  2. RIFAMPICIN [Concomitant]
  3. ISONIAZID [Concomitant]
  4. CIPROFLOXACIN [Concomitant]
  5. CLARITHROMYCIN [Concomitant]

REACTIONS (1)
  - DEATH [None]
